FAERS Safety Report 8432018-6 (Version None)
Quarter: 2012Q2

REPORT INFORMATION
  Report Type: 
  Country: None (occurrence: None)
  Receive Date: 20120613
  Receipt Date: 20120413
  Transmission Date: 20120825
  Serious: No
  Sender: FDA-Public Use
  Company Number: US-ASTRAZENECA-2011SE15941

PATIENT
  Age: 42 Year
  Sex: Female

DRUGS (2)
  1. RHINOCORT [Suspect]
     Route: 045
  2. SYMBICORT [Suspect]
     Route: 055

REACTIONS (11)
  - DYSPEPSIA [None]
  - TOOTHACHE [None]
  - ASTHMA [None]
  - NASAL CONGESTION [None]
  - INTENTIONAL DRUG MISUSE [None]
  - SINUS DISORDER [None]
  - LACRIMATION INCREASED [None]
  - DYSPNOEA [None]
  - RESPIRATORY DISORDER [None]
  - SINUS CONGESTION [None]
  - RHINORRHOEA [None]
